FAERS Safety Report 9927978 (Version 2)
Quarter: 2014Q1

REPORT INFORMATION
  Report Type: Spontaneous
  Country: US (occurrence: US)
  Receive Date: 20140227
  Receipt Date: 20140331
  Transmission Date: 20141002
  Serious: No
  Sender: FDA-Public Use
  Company Number: US-PFIZER INC-2014055440

PATIENT
  Age: 37 Year
  Sex: Male
  Weight: 59.8 kg

DRUGS (1)
  1. SERTRALINE HCL [Suspect]
     Indication: STRESS
     Dosage: 50 MG, DAILY
     Dates: start: 201402, end: 201402

REACTIONS (5)
  - Decreased appetite [Unknown]
  - Insomnia [Unknown]
  - Motor dysfunction [Unknown]
  - Dysarthria [Unknown]
  - Off label use [Unknown]
